FAERS Safety Report 11838334 (Version 2)
Quarter: 2016Q1

REPORT INFORMATION
  Report Type: Spontaneous
  Country: US (occurrence: US)
  Receive Date: 20151215
  Receipt Date: 20160309
  Transmission Date: 20160525
  Serious: No
  Sender: FDA-Public Use
  Company Number: US-ACTELION PHARMACEUTICALS US, INC.-A-NJ2015-128301

PATIENT
  Age: 84 Year
  Sex: Female

DRUGS (19)
  1. FUROSEMIDE. [Concomitant]
     Active Substance: FUROSEMIDE
  2. ATROVENT [Concomitant]
     Active Substance: IPRATROPIUM BROMIDE
  3. OPSUMIT [Suspect]
     Active Substance: MACITENTAN
     Indication: PULMONARY ARTERIAL HYPERTENSION
     Dosage: 10 MG, QD
     Route: 048
     Dates: start: 20151008
  4. ALKA-SELTZER PLUS COLD [Concomitant]
     Active Substance: ACETAMINOPHEN\CHLORPHENIRAMINE MALEATE\PHENYLEPHRINE HYDROCHLORIDE
  5. REPHRESH [Concomitant]
  6. CLONIDINE. [Concomitant]
     Active Substance: CLONIDINE
  7. SIMVASTATIN. [Concomitant]
     Active Substance: SIMVASTATIN
  8. HYOSCYAMINE SULFATE. [Concomitant]
     Active Substance: HYOSCYAMINE SULFATE
  9. SYNTHROID [Concomitant]
     Active Substance: LEVOTHYROXINE SODIUM
  10. LATANOPROST. [Concomitant]
     Active Substance: LATANOPROST
  11. HYDROCHLOROTHIAZIDE. [Concomitant]
     Active Substance: HYDROCHLOROTHIAZIDE
  12. LISINOPRIL. [Concomitant]
     Active Substance: LISINOPRIL
  13. PRINIVIL [Concomitant]
     Active Substance: LISINOPRIL
  14. ESTRACE [Concomitant]
     Active Substance: ESTRADIOL
  15. FLUTICASONE PROPIONATE. [Concomitant]
     Active Substance: FLUTICASONE PROPIONATE
  16. FLONASE [Suspect]
     Active Substance: FLUTICASONE PROPIONATE
     Indication: PRODUCT USED FOR UNKNOWN INDICATION
     Route: 065
  17. CELEBREX [Concomitant]
     Active Substance: CELECOXIB
  18. ADCIRCA [Concomitant]
     Active Substance: TADALAFIL
  19. DOXYCYCLINE MONOHYDRATE [Concomitant]
     Active Substance: DOXYCYCLINE

REACTIONS (4)
  - Nasal dryness [Not Recovered/Not Resolved]
  - Nasal discomfort [Not Recovered/Not Resolved]
  - Nasal discomfort [Not Recovered/Not Resolved]
  - Condition aggravated [Not Recovered/Not Resolved]

NARRATIVE: CASE EVENT DATE: 20151026
